FAERS Safety Report 9298855 (Version 3)
Quarter: 2013Q3

REPORT INFORMATION
  Report Type: Spontaneous
  Country: CO (occurrence: None)
  Receive Date: 20130515
  Receipt Date: 20130814
  Transmission Date: 20140515
  Serious: Yes (Hospitalization)
  Sender: FDA-Public Use
  Company Number: VAL_02512_2013

PATIENT
  Age: 24 Year
  Sex: Female
  Weight: 45 kg

DRUGS (3)
  1. METOPROLOL (METOPROLOL-METOPROLOL TARTRATE) [Suspect]
     Indication: CARDIAC FAILURE
     Route: 048
     Dates: start: 2011, end: 20130210
  2. ENALAPRIL [Concomitant]
     Indication: CARDIAC FAILURE CHRONIC
     Route: 048
     Dates: start: 20120629, end: 20130210
  3. SPIRONOLACTONE [Concomitant]

REACTIONS (3)
  - Chest pain [None]
  - Gastritis erosive [None]
  - Gastritis haemorrhagic [None]
